FAERS Safety Report 7470234-0 (Version None)
Quarter: 2011Q2

REPORT INFORMATION
  Report Type: 
  Country: None (occurrence: None)
  Receive Date: 20110506
  Receipt Date: 20110506
  Transmission Date: 20111010
  Serious: Yes (Hospitalization)
  Sender: FDA-Public Use
  Company Number: None

PATIENT
  Age: 64 Year
  Sex: Male
  Weight: 77.8 kg

DRUGS (2)
  1. INSULIN [Suspect]
     Indication: DIABETES MELLITUS
     Dosage: 40 UNITS AT BEDTIME SQ
     Route: 058
     Dates: start: 20090515, end: 20110303
  2. INSULIN [Suspect]
     Indication: DIABETES MELLITUS
     Dates: start: 20090515, end: 20110228

REACTIONS (13)
  - CONFUSIONAL STATE [None]
  - BACK PAIN [None]
  - MEMORY IMPAIRMENT [None]
  - FALL [None]
  - HAEMORRHAGE [None]
  - BLOOD GLUCOSE INCREASED [None]
  - HYPERHIDROSIS [None]
  - ASTHENIA [None]
  - SYNCOPE [None]
  - TONGUE BITING [None]
  - LOSS OF CONSCIOUSNESS [None]
  - CHEST PAIN [None]
  - HYPOGLYCAEMIA [None]
